FAERS Safety Report 24866963 (Version 1)
Quarter: 2025Q1

REPORT INFORMATION
  Report Type: Spontaneous
  Country: US (occurrence: None)
  Receive Date: 20250121
  Receipt Date: 20250121
  Transmission Date: 20250408
  Serious: Yes (Other)
  Sender: ACS DOBFAR
  Company Number: US-ACS-20250037

PATIENT
  Age: 5 Decade

DRUGS (1)
  1. CEFTRIAXONE [Suspect]
     Active Substance: CEFTRIAXONE

REACTIONS (2)
  - Palpitations [Recovered/Resolved]
  - Electrocardiogram abnormal [Recovered/Resolved]
